FAERS Safety Report 5919517-3 (Version None)
Quarter: 2008Q4

REPORT INFORMATION
  Report Type: 
  Country: None (occurrence: None)
  Receive Date: 20081014
  Receipt Date: 20081014
  Transmission Date: 20090506
  Serious: Yes (Hospitalization)
  Sender: FDA-Public Use
  Company Number: None

PATIENT
  Sex: Male

DRUGS (5)
  1. OXALIPLATIN (70MG/M2) [Suspect]
     Indication: OESOPHAGEAL CARCINOMA
     Dosage: WEEKLY IV
     Route: 042
     Dates: start: 20080827
  2. CAPECITABINE (200MG/M2) [Suspect]
     Indication: OESOPHAGEAL CARCINOMA
     Dosage: EVERY DAY PO
     Route: 048
     Dates: start: 20080829
  3. ATIVAN [Concomitant]
  4. ZOFRAN [Concomitant]
  5. PROTONIX [Concomitant]

REACTIONS (2)
  - HAEMATEMESIS [None]
  - NAUSEA [None]
